FAERS Safety Report 10272405 (Version 1)
Quarter: 2014Q2

REPORT INFORMATION
  Report Type: Spontaneous
  Country: US (occurrence: None)
  Receive Date: 20140627
  Receipt Date: 20140627
  Transmission Date: 20141212
  Serious: Yes (Hospitalization)
  Sender: FDA-Public Use
  Company Number: None

PATIENT
  Age: 48 Year
  Sex: Male
  Weight: 96.5 kg

DRUGS (2)
  1. VANCOMYCIN [Suspect]
     Indication: BRAIN MASS
     Route: 042
     Dates: start: 20140519, end: 20140523
  2. CEFTRIAXONE [Suspect]
     Route: 042
     Dates: start: 20140503, end: 20140520

REACTIONS (2)
  - Chills [None]
  - Pyrexia [None]
